FAERS Safety Report 18592245 (Version 1)
Quarter: 2020Q4

REPORT INFORMATION
  Report Type: Spontaneous
  Country: FR (occurrence: FR)
  Receive Date: 20201208
  Receipt Date: 20201208
  Transmission Date: 20210114
  Serious: Yes (Other)
  Sender: FDA-Public Use
  Company Number: FR-TEVA-2020-FR-1855606

PATIENT
  Age: 77 Year
  Sex: Female

DRUGS (8)
  1. COAPROVEL 300 MG/25 MG, COMPRIME PELLICULE [Concomitant]
     Active Substance: HYDROCHLOROTHIAZIDE\IRBESARTAN
     Indication: HYPERTENSION
     Dosage: UNIT DOSE : 1 DF
     Route: 048
  2. ROSUVASTATINE [Concomitant]
     Active Substance: ROSUVASTATIN
     Indication: CARDIOVASCULAR EVENT PROPHYLAXIS
     Dosage: UNIT DOSE : 10 MG
     Route: 048
  3. NIFEDIPINE. [Concomitant]
     Active Substance: NIFEDIPINE
     Indication: HYPERTENSION
     Dosage: UNIT DOSE : 20  MG
     Route: 048
  4. CLOPIDOGREL [Concomitant]
     Active Substance: CLOPIDOGREL BISULFATE
     Indication: CARDIOVASCULAR EVENT PROPHYLAXIS
     Dosage: UNIT DOSE : 75 MG
     Route: 048
     Dates: start: 2000
  5. ATENOLOL. [Concomitant]
     Active Substance: ATENOLOL
     Indication: HYPERTENSION
     Dosage: UNIT DOSE : 50 MG
     Route: 048
  6. AMOXICILLINE BASE [Suspect]
     Active Substance: AMOXICILLIN
     Indication: LUNG DISORDER
     Dosage: UNKNOWN
     Route: 048
     Dates: start: 20200715, end: 20200722
  7. OMNIPAQUE [Suspect]
     Active Substance: IOHEXOL
     Indication: CHEST SCAN
     Dosage: UNIT DOSE :1 DF
     Route: 042
     Dates: start: 20200722, end: 20200722
  8. ZOPICLONE [Concomitant]
     Active Substance: ZOPICLONE
     Indication: INSOMNIA
     Dosage: UNIT DOSE : 3.75 MG
     Route: 048

REACTIONS (3)
  - Eosinophilia [Recovered/Resolved]
  - Rash morbilliform [Recovered/Resolved]
  - Pruritus [Recovered/Resolved]

NARRATIVE: CASE EVENT DATE: 20200724
